FAERS Safety Report 25782698 (Version 4)
Quarter: 2025Q4

REPORT INFORMATION
  Report Type: Report from Study
  Country: EU (occurrence: EU)
  Receive Date: 20250909
  Receipt Date: 20251116
  Transmission Date: 20260118
  Serious: Yes (Other)
  Sender: ABBVIE
  Company Number: EU-ABBVIE-6450364

PATIENT
  Age: 66 Year
  Sex: Female

DRUGS (2)
  1. FOSCARBIDOPA\FOSLEVODOPA [Suspect]
     Active Substance: FOSCARBIDOPA\FOSLEVODOPA
     Indication: Parkinson^s disease
     Dosage: DOSAGE: SD: 0.30 ML, CRN: 0.16 ML/H, CR: 0.21 ML/H, CRH: 0.23 ML/H, ED: 0.10 ML
     Route: 058
     Dates: start: 20240201
  2. FOSCARBIDOPA\FOSLEVODOPA [Suspect]
     Active Substance: FOSCARBIDOPA\FOSLEVODOPA
     Dosage: CRN: 0.16 ML/H, CR: 0.23 ML/H, CRH: 0.25 ML/H, ED: 0.1 ML
     Route: 058
     Dates: start: 2025

REACTIONS (2)
  - Retinal detachment [Recovered/Resolved]
  - On and off phenomenon [Recovered/Resolved]

NARRATIVE: CASE EVENT DATE: 20250903
